FAERS Safety Report 6201401-1 (Version None)
Quarter: 2009Q2

REPORT INFORMATION
  Report Type: 
  Country: None (occurrence: None)
  Receive Date: 20090526
  Receipt Date: 20090522
  Transmission Date: 20091009
  Serious: Yes (Death)
  Sender: FDA-Public Use
  Company Number: PHHY2009IN19898

PATIENT
  Age: 74 Year
  Sex: Female

DRUGS (1)
  1. ASUNRA [Suspect]
     Dosage: 400 MG, QD

REACTIONS (1)
  - DEATH [None]
